FAERS Safety Report 16818975 (Version 1)
Quarter: 2019Q3

REPORT INFORMATION
  Report Type: Spontaneous
  Country: US (occurrence: US)
  Receive Date: 20190917
  Receipt Date: 20190917
  Transmission Date: 20191005
  Serious: Yes (Other)
  Sender: FDA-Public Use
  Company Number: US-FRESENIUS KABI-FK201910036

PATIENT
  Age: 75 Year
  Sex: Female

DRUGS (6)
  1. HEPARIN (MANUFACTURER UNKNOWN) [Suspect]
     Active Substance: HEPARIN SODIUM
     Indication: PRODUCT USED FOR UNKNOWN INDICATION
     Dosage: 5000 UNITS
     Route: 042
  2. HEPARIN (MANUFACTURER UNKNOWN) [Suspect]
     Active Substance: HEPARIN SODIUM
     Dosage: 7000 UNITS
     Route: 042
  3. ACETYLSALICYLIC ACID/ASCORBIC ACID [Suspect]
     Active Substance: ACETAMINOPHEN\ASCORBIC ACID
     Indication: ANTIPLATELET THERAPY
     Route: 048
  4. ACETYLSALICYLIC ACID/ASCORBIC ACID [Suspect]
     Active Substance: ACETAMINOPHEN\ASCORBIC ACID
     Dosage: UNKNOWN
     Route: 048
  5. PRASUGREL. [Suspect]
     Active Substance: PRASUGREL
     Indication: ANTIPLATELET THERAPY
     Route: 065
  6. HEPARIN (MANUFACTURER UNKNOWN) [Suspect]
     Active Substance: HEPARIN SODIUM
     Dosage: CONTINUOUS INFUSION
     Route: 042

REACTIONS (1)
  - Vascular pseudoaneurysm [Recovered/Resolved]
